FAERS Safety Report 4753819-1 (Version None)
Quarter: 2005Q3

REPORT INFORMATION
  Report Type: 
  Country: None (occurrence: None)
  Receive Date: 20050826
  Receipt Date: 20050818
  Transmission Date: 20060218
  Serious: Yes (Death, Hospitalization)
  Sender: FDA-Public Use
  Company Number: DE-ABBOTT-05P-062-0308848-00

PATIENT
  Sex: Male

DRUGS (3)
  1. HUMIRA [Suspect]
     Indication: RHEUMATOID ARTHRITIS
     Route: 058
     Dates: start: 20031107
  2. LEVOTHYROXINE SODIUM [Concomitant]
     Indication: DRUG USE FOR UNKNOWN INDICATION
  3. LEVOTHYROXINE SODIUM [Concomitant]

REACTIONS (23)
  - ADENOID CYSTIC CARCINOMA [None]
  - ANOREXIA [None]
  - ASCITES [None]
  - BENIGN PROSTATIC HYPERPLASIA [None]
  - BLOOD PH INCREASED [None]
  - DIVERTICULUM [None]
  - DYSPNOEA [None]
  - GASTRIC ULCER [None]
  - GASTRITIS [None]
  - GENERAL PHYSICAL HEALTH DETERIORATION [None]
  - HEPATIC FIBROSIS [None]
  - HEPATIC NECROSIS [None]
  - HEPATIC NEOPLASM MALIGNANT [None]
  - HEPATOMEGALY [None]
  - HYPOKINESIA [None]
  - JAUNDICE [None]
  - OEDEMA PERIPHERAL [None]
  - PATHOLOGICAL FRACTURE [None]
  - PROCTITIS [None]
  - PROTEIN TOTAL INCREASED [None]
  - RIB FRACTURE [None]
  - SPLENOMEGALY [None]
  - WEIGHT DECREASED [None]
